FAERS Safety Report 20331939 (Version 2)
Quarter: 2022Q1

REPORT INFORMATION
  Report Type: Spontaneous
  Country: US (occurrence: US)
  Receive Date: 20220113
  Receipt Date: 20220303
  Transmission Date: 20220423
  Serious: Yes (Death)
  Sender: FDA-Public Use
  Company Number: US-PFIZER INC-2021790419

PATIENT
  Age: 91 Year
  Sex: Male

DRUGS (2)
  1. VYNDAMAX [Suspect]
     Active Substance: TAFAMIDIS
     Dosage: 61 MG
  2. TORSEMIDE [Concomitant]
     Active Substance: TORSEMIDE
     Dosage: 150 MG IN MORNING AND 50 MG IN AFTERNOON

REACTIONS (1)
  - Death [Fatal]

NARRATIVE: CASE EVENT DATE: 20220105
